FAERS Safety Report 15689352 (Version 1)
Quarter: 2018Q4

REPORT INFORMATION
  Report Type: Not Available
  Country: US (occurrence: US)
  Receive Date: 20181205
  Receipt Date: 20181205
  Transmission Date: 20190205
  Serious: No
  Sender: FDA-Public Use
  Company Number: US-NEUROCRINE BIOSCIENCES INC.-2018NBI03389

PATIENT
  Sex: Female

DRUGS (4)
  1. CLOZARIL [Concomitant]
     Active Substance: CLOZAPINE
     Indication: SCHIZOPHRENIA
     Dosage: AT BEDTIME
     Route: 048
  2. ATENOLOL. [Concomitant]
     Active Substance: ATENOLOL
     Indication: HYPERTENSION
     Route: 048
  3. INGREZZA [Suspect]
     Active Substance: VALBENAZINE
     Indication: TARDIVE DYSKINESIA
     Route: 048
  4. AMLODIPINE [Concomitant]
     Active Substance: AMLODIPINE BESYLATE
     Indication: HYPERTENSION
     Dosage: 10 TO 20 MG ONCE DAILY BY MOUTH
     Route: 048

REACTIONS (4)
  - Blood pressure increased [Recovering/Resolving]
  - Cough [Recovering/Resolving]
  - Drug dose titration not performed [Unknown]
  - Lower respiratory tract infection [Recovering/Resolving]
